FAERS Safety Report 6543513-9 (Version None)
Quarter: 2010Q1

REPORT INFORMATION
  Report Type: 
  Country: None (occurrence: None)
  Receive Date: 20100120
  Receipt Date: 20100114
  Transmission Date: 20100710
  Serious: Yes (Hospitalization)
  Sender: FDA-Public Use
  Company Number: B0625724A

PATIENT
  Sex: Female

DRUGS (5)
  1. AUGMENTIN '125' [Suspect]
     Dosage: 3G PER DAY
     Dates: start: 20090405, end: 20090410
  2. LEVOTHYROXINE SODIUM [Concomitant]
     Dosage: 1UNIT PER DAY
     Route: 065
  3. VASTAREL [Concomitant]
     Dosage: 1UNIT PER DAY
     Route: 065
  4. VFEND [Concomitant]
     Dosage: 1UNIT PER DAY
     Route: 065
     Dates: start: 20090201
  5. SOLUPRED [Concomitant]
     Dosage: 1UNIT PER DAY
     Route: 065
     Dates: start: 20090401

REACTIONS (8)
  - CONJUNCTIVAL HYPERAEMIA [None]
  - DERMATITIS EXFOLIATIVE [None]
  - ERYTHEMA [None]
  - FACE OEDEMA [None]
  - GENERAL PHYSICAL HEALTH DETERIORATION [None]
  - INFLAMMATION [None]
  - PYREXIA [None]
  - RASH ERYTHEMATOUS [None]
